FAERS Safety Report 6977900-1 (Version None)
Quarter: 2010Q3

REPORT INFORMATION
  Report Type: 
  Country: None (occurrence: None)
  Receive Date: 20100913
  Receipt Date: 20100902
  Transmission Date: 20110219
  Serious: Yes (Hospitalization)
  Sender: FDA-Public Use
  Company Number: US-US-EMD SERONO, INC.-230092J09USA

PATIENT
  Sex: Female
  Weight: 78 kg

DRUGS (6)
  1. REBIF [Suspect]
     Indication: MULTIPLE SCLEROSIS
     Route: 058
     Dates: start: 20070912
  2. BENICAR [Concomitant]
     Indication: HYPERTENSION
     Route: 065
  3. ACETYLSALICYLIC ACID [Concomitant]
     Route: 065
  4. MULTI-VITAMINS [Concomitant]
     Route: 065
  5. ALENDRONATE SODIUM [Concomitant]
     Indication: OSTEOPOROSIS
     Route: 065
  6. CALCIUM [Concomitant]
     Indication: OSTEOPOROSIS
     Route: 065

REACTIONS (2)
  - ATRIAL FIBRILLATION [None]
  - SENSATION OF HEAVINESS [None]
